FAERS Safety Report 20451118 (Version 2)
Quarter: 2022Q1

REPORT INFORMATION
  Report Type: Spontaneous
  Country: NZ (occurrence: NZ)
  Receive Date: 20220209
  Receipt Date: 20220217
  Transmission Date: 20220424
  Serious: Yes (Other)
  Sender: FDA-Public Use
  Company Number: NZ-JNJFOC-20220208050

PATIENT
  Sex: Female

DRUGS (1)
  1. REMICADE [Suspect]
     Active Substance: INFLIXIMAB
     Indication: Product used for unknown indication
     Route: 042

REACTIONS (3)
  - Metastases to liver [Unknown]
  - Condition aggravated [Unknown]
  - Therapeutic response decreased [Unknown]
